FAERS Safety Report 8933803 (Version 7)
Quarter: 2013Q2

REPORT INFORMATION
  Report Type: Spontaneous
  Country: CA (occurrence: CA)
  Receive Date: 20121129
  Receipt Date: 20130606
  Transmission Date: 20140414
  Serious: Yes (Hospitalization, Other)
  Sender: FDA-Public Use
  Company Number: CA-ROCHE-1160057

PATIENT
  Age: 18 Year
  Sex: Female

DRUGS (6)
  1. XOLAIR [Suspect]
     Indication: ASTHMA
     Route: 058
     Dates: start: 20081024
  2. XOLAIR [Suspect]
     Route: 065
     Dates: start: 20121119
  3. XOLAIR [Suspect]
     Route: 065
     Dates: start: 20121227
  4. XOLAIR [Suspect]
     Route: 065
     Dates: start: 20130123
  5. XOLAIR [Suspect]
     Route: 065
     Dates: start: 20130502
  6. XOLAIR [Suspect]
     Route: 065
     Dates: start: 20130530

REACTIONS (14)
  - Pyrexia [Recovered/Resolved]
  - White blood cell count increased [Unknown]
  - Vomiting [Unknown]
  - Hyperaesthesia [Unknown]
  - Dizziness [Unknown]
  - Nausea [Unknown]
  - Headache [Unknown]
  - Hypertension [Unknown]
  - Blood pressure diastolic decreased [Unknown]
  - Dyspnoea [Unknown]
  - Heart rate increased [Unknown]
  - Cough [Unknown]
  - Malaise [Unknown]
  - Weight decreased [Unknown]
